FAERS Safety Report 7439343-6 (Version None)
Quarter: 2011Q2

REPORT INFORMATION
  Report Type: 
  Country: None (occurrence: None)
  Receive Date: 20110427
  Receipt Date: 20110421
  Transmission Date: 20111010
  Serious: Yes (Other)
  Sender: FDA-Public Use
  Company Number: US-RB-024643-11

PATIENT
  Age: 29 Year
  Sex: Male

DRUGS (2)
  1. MUCINEX DM [Suspect]
     Dosage: PATIENT TOOK AN ENTIRE BOX OF THE PRODUCT ON 21-APR-2011
     Route: 048
  2. DELSYM [Suspect]
     Dosage: TAKEN ON 21-APR-2011
     Route: 048

REACTIONS (3)
  - VOMITING [None]
  - HALLUCINATION [None]
  - FEELING ABNORMAL [None]
